FAERS Safety Report 7939611-5 (Version None)
Quarter: 2011Q4

REPORT INFORMATION
  Report Type: 
  Country: None (occurrence: None)
  Receive Date: 20111125
  Receipt Date: 20111118
  Transmission Date: 20120403
  Serious: Yes (Other)
  Sender: FDA-Public Use
  Company Number: US-AMGEN-USASP2011061076

PATIENT
  Age: 41 Year
  Sex: Female

DRUGS (1)
  1. ENBREL [Suspect]
     Indication: RHEUMATOID ARTHRITIS
     Dosage: 50 MG, QWK
     Dates: start: 20070131, end: 20110811

REACTIONS (6)
  - RHEUMATOID ARTHRITIS [None]
  - MENORRHAGIA [None]
  - MENSTRUATION IRREGULAR [None]
  - ANAEMIA [None]
  - HEPATIC ENZYME INCREASED [None]
  - HEPATIC ENZYME ABNORMAL [None]
